FAERS Safety Report 9074763 (Version 2)
Quarter: 2013Q1

REPORT INFORMATION
  Report Type: Spontaneous
  Country: US (occurrence: US)
  Receive Date: 20130129
  Receipt Date: 20130129
  Transmission Date: 20140127
  Serious: Yes (Other)
  Sender: FDA-Public Use
  Company Number: US-RB-048785-13

PATIENT
  Age: 22 Year
  Sex: Male

DRUGS (3)
  1. MUCINEX FAST MAX ADULT COLD + SINUS (ACETAMINOPHEN) [Suspect]
     Indication: PRODUCT USED FOR UNKNOWN INDICATION
     Route: 048
     Dates: start: 20130107
  2. MUCINEX FAST MAX ADULT COLD + SINUS (GUAIFENESIN) [Suspect]
  3. MUCINEX FAST MAX ADULT COLD + SINUS (PHENYLEPHRINE HYDROCHLORIDE) [Suspect]

REACTIONS (2)
  - Agitation [Not Recovered/Not Resolved]
  - Insomnia [Not Recovered/Not Resolved]
